FAERS Safety Report 7488722-X (Version None)
Quarter: 2011Q2

REPORT INFORMATION
  Report Type: 
  Country: None (occurrence: None)
  Receive Date: 20110518
  Receipt Date: 20110513
  Transmission Date: 20111010
  Serious: Yes (Death)
  Sender: FDA-Public Use
  Company Number: JP-BRISTOL-MYERS SQUIBB COMPANY-15697790

PATIENT

DRUGS (3)
  1. PACLITAXEL [Suspect]
     Indication: GASTRIC CANCER
     Dosage: 1 DF=60
     Route: 041
  2. LEUCOVORIN CALCIUM [Suspect]
     Indication: GASTRIC CANCER
     Dosage: INJ 1DF=250
     Route: 041
  3. FLUOROURACIL [Suspect]
     Indication: GASTRIC CANCER
     Dosage: INJ 1DF=500
     Route: 042

REACTIONS (1)
  - DEATH [None]
